FAERS Safety Report 11857116 (Version 27)
Quarter: 2018Q2

REPORT INFORMATION
  Report Type: Spontaneous
  Country: US (occurrence: US)
  Receive Date: 20151221
  Receipt Date: 20180614
  Transmission Date: 20180711
  Serious: Yes (Hospitalization, Other)
  Sender: FDA-Public Use
  Company Number: US-PFIZER INC-2015439196

PATIENT
  Age: 76 Year
  Sex: Female

DRUGS (20)
  1. IBRANCE [Suspect]
     Active Substance: PALBOCICLIB
     Dosage: 100 MG, CYCLIC (DAILY FOR 21 DAYS THEN 7 DAYS OFF)
     Route: 048
     Dates: start: 20160212
  2. VITAMIN D [Concomitant]
     Active Substance: CHOLECALCIFEROL
     Dosage: 50000 IU, UNK
  3. CIPROFLOXACIN HYDROCHLORIDE. [Concomitant]
     Active Substance: CIPROFLOXACIN HYDROCHLORIDE
     Dosage: UNK
     Dates: end: 201604
  4. FLUCONAZOLE. [Concomitant]
     Active Substance: FLUCONAZOLE
     Dosage: UNK
  5. IBRANCE [Suspect]
     Active Substance: PALBOCICLIB
     Dosage: 75 MG, CYCLIC (ONCE DAILY FOR 21 DAYS, THEN 7 DAYS OFF REPEAT EVERY 28 DAYS)
     Route: 048
     Dates: start: 2015
  6. IBRANCE [Suspect]
     Active Substance: PALBOCICLIB
     Dosage: 75 MG, CYCLIC (ONCE DAILY, 3 WEEKS A MONTH/3 WEEKS ON 1 WEEK OFF)
     Dates: start: 20160519
  7. IRON [Concomitant]
     Active Substance: IRON
     Dosage: 325 MG, UNK
  8. IBRANCE [Suspect]
     Active Substance: PALBOCICLIB
     Dosage: 75 MG, CYCLIC [TAKE ONE CAPSULE BY MOUTH ONCE DAILY WITH FOOD FOR 21 DAYS, THEN 7 DAYS OFF]
     Route: 048
     Dates: start: 201605
  9. XGEVA [Concomitant]
     Active Substance: DENOSUMAB
     Indication: BONE DISORDER
     Dosage: UNK, MONTHLY(ONCE)
  10. TRAMADOL HCL [Concomitant]
     Active Substance: TRAMADOL HYDROCHLORIDE
     Dosage: UNK
  11. IBRANCE [Suspect]
     Active Substance: PALBOCICLIB
     Dosage: 125 MG, UNK
     Dates: start: 201601
  12. IBRANCE [Suspect]
     Active Substance: PALBOCICLIB
     Dosage: 75 MG, CYCLIC (DAILY WITH FOOD FOR 21 DAYS, THEN 7 DAYS OFF)
     Route: 048
     Dates: start: 201512
  13. VITAMIN B12 [Concomitant]
     Active Substance: CYANOCOBALAMIN
     Dosage: 100 UG, UNK
  14. FEMARA [Suspect]
     Active Substance: LETROZOLE
     Dosage: 2.5 MG, DAILY
     Dates: start: 20160519
  15. TYLENOL [Concomitant]
     Active Substance: ACETAMINOPHEN
     Dosage: 325 MG, UNK
  16. IBRANCE [Suspect]
     Active Substance: PALBOCICLIB
     Indication: BREAST CANCER METASTATIC
     Dosage: 150 MG, 1X/DAY
     Dates: start: 201512
  17. IBRANCE [Suspect]
     Active Substance: PALBOCICLIB
     Dosage: 75 MG, CYCLIC (ONCE DAILY FOR 21 DAYS, THEN 7 DAYS OFF REPEAT EVERY 28 DAYS)
     Route: 048
     Dates: start: 2015
  18. FEMARA [Suspect]
     Active Substance: LETROZOLE
     Indication: BLOOD OESTROGEN DECREASED
     Dosage: UNK
     Dates: start: 201512
  19. CIPROFLOXACIN. [Concomitant]
     Active Substance: CIPROFLOXACIN
     Dosage: UNK
  20. IBRANCE [Suspect]
     Active Substance: PALBOCICLIB
     Dosage: 100 MG, UNK
     Dates: start: 201601

REACTIONS (30)
  - Pain in extremity [Unknown]
  - Dry skin [Not Recovered/Not Resolved]
  - Influenza [Not Recovered/Not Resolved]
  - Diarrhoea [Unknown]
  - Abdominal distension [Unknown]
  - Malaise [Unknown]
  - Eye disorder [Unknown]
  - Respiratory tract infection [Unknown]
  - Overdose [Unknown]
  - Alopecia [Not Recovered/Not Resolved]
  - Dizziness [Not Recovered/Not Resolved]
  - Blood iron decreased [Not Recovered/Not Resolved]
  - Vitamin B12 decreased [Not Recovered/Not Resolved]
  - Cough [Not Recovered/Not Resolved]
  - Skin exfoliation [Recovering/Resolving]
  - Epistaxis [Recovered/Resolved]
  - Decreased appetite [Unknown]
  - Chills [Not Recovered/Not Resolved]
  - Upper respiratory tract infection [Not Recovered/Not Resolved]
  - Asthenia [Not Recovered/Not Resolved]
  - Urinary tract infection [Not Recovered/Not Resolved]
  - Pruritus [Recovering/Resolving]
  - Depression [Not Recovered/Not Resolved]
  - White blood cell count decreased [Unknown]
  - Insomnia [Unknown]
  - Immune system disorder [Unknown]
  - Fatigue [Not Recovered/Not Resolved]
  - Stomatitis [Recovered/Resolved]
  - Pain [Not Recovered/Not Resolved]
  - Neoplasm progression [Recovering/Resolving]

NARRATIVE: CASE EVENT DATE: 201512
